FAERS Safety Report 19415034 (Version 1)
Quarter: 2021Q2

REPORT INFORMATION
  Report Type: Spontaneous
  Country: CA (occurrence: CA)
  Receive Date: 20210615
  Receipt Date: 20210615
  Transmission Date: 20210717
  Serious: Yes (Other)
  Sender: FDA-Public Use
  Company Number: CA-JNJFOC-20210109326

PATIENT
  Age: 24 Year
  Sex: Male

DRUGS (2)
  1. REMICADE [Suspect]
     Active Substance: INFLIXIMAB
     Indication: CROHN^S DISEASE
     Route: 042
  2. REMICADE [Suspect]
     Active Substance: INFLIXIMAB
     Indication: COLITIS ULCERATIVE
     Route: 042

REACTIONS (11)
  - Arthralgia [Unknown]
  - Vitamin D decreased [Unknown]
  - Anxiety [Unknown]
  - Condition aggravated [Unknown]
  - Off label use [Unknown]
  - Drug level below therapeutic [Unknown]
  - Oropharyngeal pain [Unknown]
  - Tonsillar hypertrophy [Unknown]
  - Therapeutic response shortened [Unknown]
  - Pyrexia [Unknown]
  - Tonsillar erythema [Unknown]
